FAERS Safety Report 11381975 (Version 1)
Quarter: 2015Q3

REPORT INFORMATION
  Report Type: Spontaneous
  Country: US (occurrence: US)
  Receive Date: 20150811
  Receipt Date: 20150811
  Transmission Date: 20151125
  Serious: Yes (Hospitalization)
  Sender: FDA-Public Use
  Company Number: US-ELI_LILLY_AND_COMPANY-US200909005302

PATIENT
  Sex: Male

DRUGS (2)
  1. CIALIS [Suspect]
     Active Substance: TADALAFIL
     Dosage: UNK, UNKNOWN
     Route: 048
  2. IMDUR [Interacting]
     Active Substance: ISOSORBIDE MONONITRATE
     Indication: ANGINA PECTORIS
     Dosage: UNK, UNKNOWN
     Route: 065

REACTIONS (3)
  - Hypotension [Recovering/Resolving]
  - Off label use [Unknown]
  - Drug interaction [Unknown]

NARRATIVE: CASE EVENT DATE: 20090916
